FAERS Safety Report 6060567-7 (Version None)
Quarter: 2009Q1

REPORT INFORMATION
  Report Type: 
  Country: None (occurrence: None)
  Receive Date: 20090130
  Receipt Date: 20090130
  Transmission Date: 20090719
  Serious: Yes (Other)
  Sender: FDA-Public Use
  Company Number: None

PATIENT
  Age: 83 Year
  Sex: Female
  Weight: 61.2356 kg

DRUGS (1)
  1. GABAPENTIN [Suspect]
     Indication: TREMOR
     Dosage: 100 MG 3 TIMES DAILY ORALLY
     Route: 048
     Dates: start: 20081204, end: 20081207

REACTIONS (4)
  - FALL [None]
  - FATIGUE [None]
  - MUSCULAR WEAKNESS [None]
  - URINARY INCONTINENCE [None]
